FAERS Safety Report 9455659 (Version 1)
Quarter: 2013Q3

REPORT INFORMATION
  Report Type: Report from Study
  Country: US (occurrence: US)
  Receive Date: 20130813
  Receipt Date: 20130813
  Transmission Date: 20140515
  Serious: Yes (Hospitalization)
  Sender: FDA-Public Use
  Company Number: US-ROCHE-1259987

PATIENT
  Age: 50 Year
  Sex: Female
  Weight: 69.1 kg

DRUGS (11)
  1. PEG-INTERFERON ALFA 2A [Suspect]
     Indication: HEPATITIS C
     Route: 065
     Dates: start: 20130425, end: 20130531
  2. RIBAVIRIN [Suspect]
     Indication: HEPATITIS C
     Route: 065
     Dates: start: 20130425, end: 20130531
  3. TELAPREVIR [Suspect]
     Indication: HEPATITIS C
     Route: 065
  4. ALBUTEROL [Concomitant]
  5. NEURONTIN (UNITED STATES) [Concomitant]
  6. LISINOPRIL/HCTZ [Concomitant]
  7. LORATADINE [Concomitant]
  8. MELOXICAM [Concomitant]
  9. ZOFRAN [Concomitant]
  10. PAXIL [Concomitant]
  11. HYDROXYZINE [Concomitant]

REACTIONS (4)
  - Anaemia [Unknown]
  - Renal failure acute [Unknown]
  - Suicidal ideation [Unknown]
  - Blood creatinine increased [Unknown]
